FAERS Safety Report 12265415 (Version 1)
Quarter: 2016Q2

REPORT INFORMATION
  Report Type: Report from Study
  Country: GB (occurrence: GB)
  Receive Date: 20160413
  Receipt Date: 20160413
  Transmission Date: 20160815
  Serious: Yes (Other)
  Sender: FDA-Public Use
  Company Number: GB-JNJFOC-20160407925

PATIENT
  Sex: Female

DRUGS (1)
  1. STELARA [Suspect]
     Active Substance: USTEKINUMAB
     Indication: PSORIATIC ARTHROPATHY
     Dosage: ON WEEK 4
     Route: 058
     Dates: start: 20160122

REACTIONS (2)
  - Musculoskeletal disorder [Unknown]
  - Kidney infection [Unknown]

NARRATIVE: CASE EVENT DATE: 2016
